FAERS Safety Report 21018728 (Version 2)
Quarter: 2022Q2

REPORT INFORMATION
  Report Type: Spontaneous
  Country: US (occurrence: US)
  Receive Date: 20220628
  Receipt Date: 20220630
  Transmission Date: 20220721
  Serious: Yes (Other)
  Sender: FDA-Public Use
  Company Number: US-PFIZER INC-202200716892

PATIENT
  Age: 73 Year
  Sex: Male

DRUGS (3)
  1. VYNDAMAX [Suspect]
     Active Substance: TAFAMIDIS
     Indication: Pain in extremity
     Dosage: 61 MG, 1X/DAY
     Dates: start: 20220501
  2. VYNDAMAX [Suspect]
     Active Substance: TAFAMIDIS
     Indication: Hypoaesthesia
  3. VYNDAMAX [Suspect]
     Active Substance: TAFAMIDIS
     Indication: Peripheral swelling

REACTIONS (4)
  - Paralysis [Unknown]
  - Off label use [Unknown]
  - Drug effective for unapproved indication [Unknown]
  - Pain [Unknown]

NARRATIVE: CASE EVENT DATE: 20220501
